FAERS Safety Report 10071392 (Version 1)
Quarter: 2014Q2

REPORT INFORMATION
  Report Type: Report from Study
  Country: US (occurrence: US)
  Receive Date: 20140410
  Receipt Date: 20140410
  Transmission Date: 20141212
  Serious: Yes (Hospitalization)
  Sender: FDA-Public Use
  Company Number: US-B.I. PHARMACEUTICALS,INC./RIDGEFIELD-2014-BI-15456BI

PATIENT
  Age: 74 Year
  Sex: Female

DRUGS (14)
  1. DABIGATRAN [Suspect]
     Indication: ATRIAL FIBRILLATION
     Dosage: 300 MG
     Route: 048
     Dates: end: 20120421
  2. MULTAQ [Concomitant]
     Dosage: 800 MG
     Route: 048
  3. LASIX [Concomitant]
     Dosage: 40 MG
     Route: 048
  4. CITALOPRAM [Concomitant]
     Dosage: 10 MG
     Route: 048
  5. JANUMET [Concomitant]
     Dosage: DAILY DOSE : 50/500 MG
     Route: 048
  6. GLIMEPIRIDE [Concomitant]
     Dosage: 2 MG
     Route: 048
  7. PEPCIA [Concomitant]
     Dosage: 40 MG
     Route: 048
  8. ZOCOR [Concomitant]
     Dosage: 20 MG
     Route: 048
  9. LOPRESSOR [Concomitant]
     Dosage: 25 MG
     Route: 048
  10. PROTONIX [Concomitant]
     Dosage: 80 MG
     Route: 048
     Dates: start: 20120421, end: 20120422
  11. PROTONIX [Concomitant]
     Dosage: DOSE PER APPLICATION AND DAILY DOSE : 8MG/HR
     Route: 065
  12. PROTONIX [Concomitant]
     Dosage: 80 MG
     Route: 065
  13. CARAFATE [Concomitant]
     Dosage: 4 G
     Route: 048
     Dates: start: 20120421, end: 20120422
  14. ANUSOL HC [Concomitant]
     Indication: PAIN
     Dosage: 50 MG
     Route: 065
     Dates: start: 20120421, end: 20120422

REACTIONS (1)
  - Upper gastrointestinal haemorrhage [Unknown]
